FAERS Safety Report 6534274-8 (Version None)
Quarter: 2010Q1

REPORT INFORMATION
  Report Type: 
  Country: None (occurrence: None)
  Receive Date: 20100112
  Receipt Date: 20100104
  Transmission Date: 20100710
  Serious: Yes (Hospitalization)
  Sender: FDA-Public Use
  Company Number: CH-ABBOTT-10P-151-0617450-00

PATIENT
  Age: 75 Year
  Sex: Female

DRUGS (10)
  1. DEPAKENE [Suspect]
     Indication: EPILEPSY
     Route: 048
     Dates: start: 19850101, end: 20080201
  2. DEPAKENE [Suspect]
     Route: 048
     Dates: start: 20080201
  3. ATENOLOL [Concomitant]
     Indication: DRUG USE FOR UNKNOWN INDICATION
  4. TORASEMIDE [Concomitant]
     Indication: DRUG USE FOR UNKNOWN INDICATION
  5. SIMVASTATIN [Concomitant]
     Indication: DRUG USE FOR UNKNOWN INDICATION
  6. METFIN [Concomitant]
     Indication: DRUG USE FOR UNKNOWN INDICATION
  7. FOSAMAX [Concomitant]
     Indication: DRUG USE FOR UNKNOWN INDICATION
  8. INSULIN DETEMIR [Concomitant]
     Indication: DRUG USE FOR UNKNOWN INDICATION
  9. NOVORAPID [Concomitant]
     Indication: DRUG USE FOR UNKNOWN INDICATION
  10. CITALOPRAM [Concomitant]
     Indication: DRUG USE FOR UNKNOWN INDICATION
     Dates: start: 20081001

REACTIONS (8)
  - ATAXIA [None]
  - COORDINATION ABNORMAL [None]
  - DIZZINESS [None]
  - DRUG INEFFECTIVE [None]
  - DRUG LEVEL ABOVE THERAPEUTIC [None]
  - EPILEPSY [None]
  - GAIT DISTURBANCE [None]
  - TREMOR [None]
